FAERS Safety Report 23220746 (Version 3)
Quarter: 2024Q2

REPORT INFORMATION
  Report Type: Spontaneous
  Country: US (occurrence: US)
  Receive Date: 20231123
  Receipt Date: 20240406
  Transmission Date: 20240716
  Serious: No
  Sender: FDA-Public Use
  Company Number: US-AMGEN-USASP2023208127

PATIENT
  Age: 63 Year
  Sex: Female

DRUGS (1)
  1. REPATHA [Suspect]
     Active Substance: EVOLOCUMAB
     Indication: Blood cholesterol abnormal
     Dosage: 420 MILLIGRAM, QMO
     Route: 065
     Dates: start: 2023

REACTIONS (9)
  - Injection site pain [Unknown]
  - Injection site mass [Unknown]
  - Injection site discomfort [Unknown]
  - Drug dose omission by device [Unknown]
  - Product preparation error [Unknown]
  - Product storage error [Unknown]
  - Incorrect disposal of product [Unknown]
  - Wrong technique in product usage process [Unknown]
  - Product administration error [Unknown]

NARRATIVE: CASE EVENT DATE: 20230101
